FAERS Safety Report 10960843 (Version 1)
Quarter: 2015Q1

REPORT INFORMATION
  Report Type: Spontaneous
  Country: SE (occurrence: None)
  Receive Date: 20150325
  Receipt Date: 20150325
  Transmission Date: 20150721
  Serious: Yes (Other)
  Sender: FDA-Public Use
  Company Number: 2015-10875

PATIENT
  Age: 88 Year
  Sex: Female

DRUGS (17)
  1. EYLEA [Suspect]
     Active Substance: AFLIBERCEPT
     Indication: MACULOPATHY
     Route: 031
     Dates: start: 20130418, end: 20141118
  2. LASIX RETARD (FUROSEMIDE) [Concomitant]
  3. LOMUDAL (CROMOGLICATE SODIUM) [Concomitant]
  4. OXYNORM (OXYCODONE HYDROCHLORIDE) (OXYCODONE HYDROCHLORIDE) [Concomitant]
     Active Substance: OXYCODONE HYDROCHLORIDE
  5. OXASCAND (OXAZEPAM) [Concomitant]
  6. WARAN (WARFARIN SODIUM) [Concomitant]
  7. LYRICA [Concomitant]
     Active Substance: PREGABALIN
  8. AURORIX (MOCLOBEMIDE) [Concomitant]
  9. SERETIDE DISKUS (FLUTICASONE, SALMETEROL) [Concomitant]
  10. LEVAXIN (LEVOTHYROXINE SODIUM) [Concomitant]
  11. IMOVACNE (ZOPICLONE) [Concomitant]
  12. MOVICOL (MACROGOL, POTASSIUM CHLORIDE, SODIUM ICARBONATE0 [Concomitant]
  13. SELOKENZOC (METOPROLOL SUCCINATE) [Concomitant]
  14. FURIX (FUROSEMIDE) [Concomitant]
     Active Substance: FUROSEMIDE
  15. LIVOSTIN (LEVOCABASTINE HYDROCHLORIDE) [Concomitant]
  16. ALVEDON (PARACETAMOL) [Concomitant]
  17. VENTOLIN (SALBUTAMOL) (SALBUTAMOL) [Concomitant]

REACTIONS (2)
  - Trigeminal nerve disorder [None]
  - Sensory loss [None]

NARRATIVE: CASE EVENT DATE: 20141118
